FAERS Safety Report 4649680-6 (Version None)
Quarter: 2005Q2

REPORT INFORMATION
  Report Type: 
  Country: None (occurrence: None)
  Receive Date: 20050502
  Receipt Date: 20050421
  Transmission Date: 20051028
  Serious: Yes (Hospitalization)
  Sender: FDA-Public Use
  Company Number: 200511090EU

PATIENT
  Age: 56 Year
  Sex: Female

DRUGS (5)
  1. LASIX [Suspect]
     Indication: PULMONARY OEDEMA
     Route: 042
     Dates: start: 20050104, end: 20050107
  2. PLATINOL [Suspect]
     Indication: OROPHARYNGEAL CANCER STAGE UNSPECIFIED
     Route: 042
     Dates: start: 20050103, end: 20050107
  3. IRESSA [Concomitant]
     Indication: HYPOPHARYNGEAL CANCER
     Route: 048
     Dates: start: 20050105
  4. NAVOBAN [Concomitant]
     Dates: start: 20050103, end: 20050107
  5. FORTECORTIN [Concomitant]
     Route: 048
     Dates: start: 20050103, end: 20050111

REACTIONS (3)
  - HYPOCHLORAEMIA [None]
  - HYPONATRAEMIA [None]
  - RENAL FAILURE ACUTE [None]
